FAERS Safety Report 19362090 (Version 20)
Quarter: 2022Q4

REPORT INFORMATION
  Report Type: Report from Study
  Country: IT (occurrence: None)
  Receive Date: 20210603
  Receipt Date: 20221115
  Transmission Date: 20230113
  Serious: Yes (Hospitalization)
  Sender: FDA-Public Use
  Company Number: IT-ROCHE-2840764

PATIENT
  Age: 65 Year
  Sex: Female
  Weight: 75 kg

DRUGS (19)
  1. ATEZOLIZUMAB [Suspect]
     Active Substance: ATEZOLIZUMAB
     Indication: Triple negative breast cancer
     Dosage: ON 29/APR/2021, SHE RECEIVED MOST RECENT DOSE OF ATEZOLIZUMAB (840 MG) PRIOR TO ONSET OF ADVERSE EVE
     Route: 041
     Dates: start: 20210217
  2. PACLITAXEL [Suspect]
     Active Substance: PACLITAXEL
     Indication: Triple negative breast cancer
     Dosage: ON 29/APR/2021, SHE RECEIVED MOST RECENT DOSE OF NAB-PACLITAXEL 100 MG/M2 PRIOR TO ONSET OF SERIOUS
     Route: 042
     Dates: start: 20210217
  3. HYDROCHLOROTHIAZIDE\OLMESARTAN MEDOXOMIL [Concomitant]
     Active Substance: HYDROCHLOROTHIAZIDE\OLMESARTAN MEDOXOMIL
     Dates: start: 2000
  4. LERCANIDIPINE HYDROCHLORIDE [Concomitant]
     Active Substance: LERCANIDIPINE HYDROCHLORIDE
     Dates: start: 2000
  5. LANSOPRAZOLE [Concomitant]
     Active Substance: LANSOPRAZOLE
     Indication: Prophylaxis
     Dates: start: 20210217
  6. KURAFER PLUS [Concomitant]
     Indication: Prophylaxis
     Dates: start: 20210303
  7. ERYTHROPOIETIN [Concomitant]
     Active Substance: ERYTHROPOIETIN
     Indication: Prophylaxis
     Dates: start: 20210429
  8. SALINE [Concomitant]
     Active Substance: SODIUM CHLORIDE
  9. SODIUM BICARBONATE [Concomitant]
     Active Substance: SODIUM BICARBONATE
     Dates: start: 20210513, end: 20210605
  10. ALLOPURINOL [Concomitant]
     Active Substance: ALLOPURINOL
     Dates: start: 20210513, end: 20210605
  11. ONDANSETRON [Concomitant]
     Active Substance: ONDANSETRON
     Dates: start: 20210415, end: 20210415
  12. ONDANSETRON [Concomitant]
     Active Substance: ONDANSETRON
     Dates: start: 20210422, end: 20210422
  13. ONDANSETRON [Concomitant]
     Active Substance: ONDANSETRON
     Dates: start: 20210429, end: 20210429
  14. RANITIDINE [Concomitant]
     Active Substance: RANITIDINE
     Dates: start: 20210415, end: 20210415
  15. RANITIDINE [Concomitant]
     Active Substance: RANITIDINE
     Dates: start: 20210422, end: 20210422
  16. RANITIDINE [Concomitant]
     Active Substance: RANITIDINE
     Dates: start: 20210429, end: 20210429
  17. CHLORPHENIRAMINE MALEATE [Concomitant]
     Active Substance: CHLORPHENIRAMINE MALEATE
     Dates: start: 20210415, end: 20210415
  18. CHLORPHENIRAMINE MALEATE [Concomitant]
     Active Substance: CHLORPHENIRAMINE MALEATE
     Dates: start: 20210422, end: 20210422
  19. CHLORPHENIRAMINE MALEATE [Concomitant]
     Active Substance: CHLORPHENIRAMINE MALEATE
     Dates: start: 20210429, end: 20210429

REACTIONS (3)
  - Hypokalaemia [Recovered/Resolved]
  - Colitis [Recovered/Resolved]
  - Renal failure [Recovered/Resolved]

NARRATIVE: CASE EVENT DATE: 20210503
